FAERS Safety Report 7642153-8 (Version None)
Quarter: 2011Q3

REPORT INFORMATION
  Report Type: 
  Country: None (occurrence: None)
  Receive Date: 20110728
  Receipt Date: 20110725
  Transmission Date: 20111222
  Serious: Yes (Death, Other)
  Sender: FDA-Public Use
  Company Number: US-AMGEN-USASP2011035939

PATIENT
  Age: 85 Year
  Sex: Male

DRUGS (1)
  1. NPLATE [Suspect]
     Indication: MYELODYSPLASTIC SYNDROME
     Dosage: UNK
     Dates: start: 20110222, end: 20110308

REACTIONS (7)
  - DRUG INEFFECTIVE [None]
  - ANAEMIA [None]
  - MYELOBLAST COUNT INCREASED [None]
  - BONE MARROW FAILURE [None]
  - DEATH [None]
  - ACUTE LEUKAEMIA [None]
  - PLATELET COUNT ABNORMAL [None]
